FAERS Safety Report 10445864 (Version 6)
Quarter: 2015Q1

REPORT INFORMATION
  Report Type: Report from Study
  Country: US (occurrence: US)
  Receive Date: 20140910
  Receipt Date: 20150206
  Transmission Date: 20150720
  Serious: Yes (Hospitalization, Other)
  Sender: FDA-Public Use
  Company Number: US-SA-2014SA024866

PATIENT
  Age: 48 Year
  Sex: Male

DRUGS (2)
  1. AUBAGIO [Suspect]
     Active Substance: TERIFLUNOMIDE
     Indication: MULTIPLE SCLEROSIS
     Route: 048
     Dates: start: 20140116, end: 20141219
  2. MORPHINE [Concomitant]
     Active Substance: MORPHINE
     Indication: PAIN
     Dosage: FOR SEVERAL YEARS

REACTIONS (14)
  - Multiple sclerosis relapse [Unknown]
  - Pain in extremity [Not Recovered/Not Resolved]
  - Alopecia [Unknown]
  - Limb discomfort [Unknown]
  - Joint swelling [Unknown]
  - Hypoaesthesia [Unknown]
  - Incontinence [Unknown]
  - Back pain [Unknown]
  - Gait disturbance [Unknown]
  - Memory impairment [Unknown]
  - Vitamin D decreased [Unknown]
  - Paraesthesia [Not Recovered/Not Resolved]
  - Nuclear magnetic resonance imaging abnormal [Unknown]
  - Asthenia [Not Recovered/Not Resolved]

NARRATIVE: CASE EVENT DATE: 2014
